FAERS Safety Report 18623675 (Version 1)
Quarter: 2020Q4

REPORT INFORMATION
  Report Type: Spontaneous
  Country: MY (occurrence: MY)
  Receive Date: 20201216
  Receipt Date: 20201216
  Transmission Date: 20210114
  Serious: Yes (Death)
  Sender: FDA-Public Use
  Company Number: MY-PFIZER INC-2019409318

PATIENT

DRUGS (1)
  1. IBRANCE [Suspect]
     Active Substance: PALBOCICLIB
     Dosage: 125 MG, UNK
     Route: 048

REACTIONS (3)
  - Skin exfoliation [Unknown]
  - Death [Fatal]
  - Abdominal pain [Unknown]
